FAERS Safety Report 7203972-5 (Version None)
Quarter: 2010Q4

REPORT INFORMATION
  Report Type: 
  Country: None (occurrence: None)
  Receive Date: 20101230
  Receipt Date: 20101222
  Transmission Date: 20110411
  Serious: Yes (Death)
  Sender: FDA-Public Use
  Company Number: CA-ELI_LILLY_AND_COMPANY-CA201011006461

PATIENT
  Sex: Female

DRUGS (25)
  1. CYMBALTA [Suspect]
     Indication: FIBROMYALGIA
     Dosage: 30 MG, EACH EVENING
  2. CYMBALTA [Suspect]
     Dosage: 60 MG, DAILY (1/D)
  3. METHADONE [Concomitant]
  4. HYDROMORPHONE HCL [Concomitant]
     Dosage: 15 MG, 2/D
     Dates: start: 20100810, end: 20100830
  5. HYDROMORPHONE HCL [Concomitant]
     Dosage: 9 MG, 2/D
     Dates: start: 20100903, end: 20100905
  6. HYDROMORPHONE HCL [Concomitant]
     Dosage: 12 MG, UNK
     Dates: start: 20100810, end: 20100902
  7. LYRICA [Concomitant]
     Dosage: 75 MG, EACH MORNING
  8. LYRICA [Concomitant]
     Dosage: 150 MG, EACH MORNING
  9. ESTRACE [Concomitant]
     Indication: HORMONE REPLACEMENT THERAPY
     Dosage: 1 MG, EACH MORNING
  10. METADOL [Concomitant]
     Dosage: 2.5 MG, 3/D
     Dates: start: 20100810, end: 20100812
  11. METADOL [Concomitant]
     Dosage: 5 MG, 3/D
     Dates: start: 20100813, end: 20100815
  12. METADOL [Concomitant]
     Dosage: 7.5 MG, 3/D
     Dates: start: 20100816, end: 20100818
  13. NORVASC [Concomitant]
     Indication: BLOOD PRESSURE
     Dosage: 5 MG, EACH EVENING
  14. PMS-CLONAZEPAM [Concomitant]
     Indication: ANXIETY
     Dosage: 0.5 MG, AS NEEDED
  15. PREVACID [Concomitant]
     Indication: GASTROOESOPHAGEAL REFLUX DISEASE
     Dosage: 30 MG, DAILY (1/D)
  16. EZETROL [Concomitant]
     Indication: BLOOD CHOLESTEROL INCREASED
     Dosage: 10 MG, DAILY (1/D)
  17. OYSTER SHELL CALCIUM [Concomitant]
     Dosage: 500 MG, 2/D
  18. MEDROXYPROGESTERONE [Concomitant]
     Dosage: 5 MG, EACH MORNING
  19. NAPROXEN [Concomitant]
     Indication: PAIN
     Dosage: 500 MG, 2/D
  20. HYDROMORPHONE HCL [Concomitant]
  21. TEMAZEPAM [Concomitant]
     Dosage: 30 MG, AS NEEDED
  22. AVAPRO [Concomitant]
     Indication: HYPERTENSION
     Dosage: 300 MG, EACH MORNING
  23. DOCUSATE SODIUM [Concomitant]
     Indication: CONSTIPATION
  24. SENNA [Concomitant]
     Indication: CONSTIPATION
  25. CIPRO XR [Concomitant]
     Indication: INFECTION
     Dosage: 500 MG, DAILY (1/D)

REACTIONS (1)
  - DEATH [None]
